FAERS Safety Report 25998483 (Version 1)
Quarter: 2025Q4

REPORT INFORMATION
  Report Type: Spontaneous
  Country: US (occurrence: US)
  Receive Date: 20251105
  Receipt Date: 20251105
  Transmission Date: 20260117
  Serious: No
  Sender: AMGEN
  Company Number: US-AMGEN-USASP2025215670

PATIENT

DRUGS (2)
  1. KANJINTI [Suspect]
     Active Substance: TRASTUZUMAB-ANNS
     Indication: Breast cancer
     Dosage: UNK, (DOSE ORDERED: 600 MILLIGRAM)
     Route: 065
  2. KANJINTI [Suspect]
     Active Substance: TRASTUZUMAB-ANNS
     Indication: Plasma cell myeloma

REACTIONS (1)
  - Therapy interrupted [Unknown]

NARRATIVE: CASE EVENT DATE: 20251029
